FAERS Safety Report 17421055 (Version 3)
Quarter: 2020Q1

REPORT INFORMATION
  Report Type: Spontaneous
  Country: AT (occurrence: AT)
  Receive Date: 20200214
  Receipt Date: 20200225
  Transmission Date: 20200409
  Serious: Yes (Life-Threatening, Other)
  Sender: FDA-Public Use
  Company Number: AT-PFIZER INC-2020059853

PATIENT
  Age: 8 Year
  Sex: Male
  Weight: 18 kg

DRUGS (6)
  1. OLEOVIT-D3 [Concomitant]
     Dosage: 2 GTT, DAILY
  2. AMPHO-MORONAL [Concomitant]
     Active Substance: AMPHOTERICIN B
     Dosage: 0.5 ML, 3X/DAY
  3. EUSAPRIM [SULFAMETHOXAZOLE;TRIMETHOPRIM] [Concomitant]
     Active Substance: SULFAMETHOXAZOLE\TRIMETHOPRIM
     Dosage: 7.5 MG, 2X/DAY
  4. RAPAMUNE [Suspect]
     Active Substance: SIROLIMUS
     Indication: LYMPHANGIOMA
     Dosage: UNK
  5. AMOXILAN [Concomitant]
     Dosage: 4 ML, 3X/DAY  (500MG/5ML)
  6. RAPAMUNE [Suspect]
     Active Substance: SIROLIMUS
     Indication: GORHAM^S DISEASE
     Dosage: 4.5 ML, 2X/DAY
     Dates: end: 202002

REACTIONS (6)
  - Accidental overdose [Unknown]
  - Product use in unapproved indication [Not Recovered/Not Resolved]
  - Pneumonia mycoplasmal [Recovering/Resolving]
  - Product use issue [Unknown]
  - Toxicity to various agents [Recovering/Resolving]
  - Off label use [Unknown]

NARRATIVE: CASE EVENT DATE: 20200207
